FAERS Safety Report 4477880-7 (Version None)
Quarter: 2004Q4

REPORT INFORMATION
  Report Type: 
  Country: None (occurrence: None)
  Receive Date: 20041018
  Receipt Date: 20041008
  Transmission Date: 20050328
  Serious: Yes (Hospitalization, Other)
  Sender: FDA-Public Use
  Company Number: BR-MERCK-0410BRA00290

PATIENT
  Age: 27 Year
  Sex: Male

DRUGS (3)
  1. CAPTOPRIL [Concomitant]
     Route: 065
  2. ISOSORBIDE DINITRATE [Concomitant]
     Route: 065
  3. VIOXX [Suspect]
     Route: 048
     Dates: start: 20020401, end: 20020901

REACTIONS (3)
  - CHEST PAIN [None]
  - MYOCARDIAL INFARCTION [None]
  - TACHYCARDIA [None]
